FAERS Safety Report 4658952-0 (Version None)
Quarter: 2005Q2

REPORT INFORMATION
  Report Type: 
  Country: None (occurrence: None)
  Receive Date: 20050509
  Receipt Date: 20050425
  Transmission Date: 20051028
  Serious: Yes (Life-Threatening)
  Sender: FDA-Public Use
  Company Number: 04P-013-0277072-00

PATIENT
  Age: 62 Year
  Sex: Female
  Weight: 66 kg

DRUGS (11)
  1. HUMIRA [Suspect]
     Indication: RHEUMATOID ARTHRITIS
     Dosage: 40 MG, 1 IN 2 WK, SUBCUTANEOUS
     Route: 058
     Dates: start: 20040721, end: 20040920
  2. METHOTREXATE [Concomitant]
  3. FOLIC ACID [Concomitant]
  4. METHYLPREDNISOLONE [Concomitant]
  5. CELECOXIB [Concomitant]
  6. COLECALCIFEROL [Concomitant]
  7. CALCIUM GLUCONATE [Concomitant]
  8. CITALOPRAM HYDROBROMIDE [Concomitant]
  9. ALPRAZOLAM [Concomitant]
  10. SULFASALAZINE [Concomitant]
  11. HUMIRA (COMMERICAL) [Concomitant]

REACTIONS (3)
  - DIFFUSE LARGE B-CELL LYMPHOMA [None]
  - NECROSIS [None]
  - PHARYNGEAL CANCER STAGE UNSPECIFIED [None]
